FAERS Safety Report 19901868 (Version 8)
Quarter: 2022Q1

REPORT INFORMATION
  Report Type: Report from Study
  Country: CA (occurrence: CA)
  Receive Date: 20210929
  Receipt Date: 20220215
  Transmission Date: 20220423
  Serious: Yes (Death, Hospitalization, Other)
  Sender: FDA-Public Use
  Company Number: CA-ABBVIE-21K-028-4096625-00

PATIENT
  Sex: Male

DRUGS (2)
  1. SKYRIZI [Suspect]
     Active Substance: RISANKIZUMAB-RZAA
     Indication: Psoriasis
     Route: 058
     Dates: start: 20210416, end: 20210806
  2. SKYRIZI [Suspect]
     Active Substance: RISANKIZUMAB-RZAA
     Route: 058
     Dates: start: 20211022, end: 20211022

REACTIONS (11)
  - Post procedural complication [Fatal]
  - Deep vein thrombosis [Unknown]
  - Urosepsis [Unknown]
  - Intestinal operation [Unknown]
  - Coronary artery occlusion [Unknown]
  - Myocardial infarction [Not Recovered/Not Resolved]
  - Rotator cuff syndrome [Unknown]
  - Shoulder operation [Unknown]
  - Renal impairment [Unknown]
  - Infective tenosynovitis [Unknown]
  - Postoperative wound infection [Unknown]

NARRATIVE: CASE EVENT DATE: 20210101
